FAERS Safety Report 23845610 (Version 1)
Quarter: 2024Q2

REPORT INFORMATION
  Report Type: Report from Study
  Country: US (occurrence: US)
  Receive Date: 20240511
  Receipt Date: 20240511
  Transmission Date: 20240715
  Serious: Yes (Hospitalization, Other)
  Sender: FDA-Public Use
  Company Number: US-ABBVIE-5747882

PATIENT
  Age: 78 Year
  Sex: Male
  Weight: 86 kg

DRUGS (20)
  1. HUMIRA [Suspect]
     Active Substance: ADALIMUMAB
     Indication: Rheumatoid arthritis
     Dosage: CITRATE FREE?FORM STRENGTH: 40 MG
     Route: 058
     Dates: start: 20220329
  2. ASPIRIN [Concomitant]
     Active Substance: ASPIRIN
     Indication: Anticoagulant therapy
     Route: 065
  3. LASIX [Concomitant]
     Active Substance: FUROSEMIDE
     Indication: Fluid retention
     Route: 065
  4. FERROUS SULFATE [Concomitant]
     Active Substance: FERROUS SULFATE
     Indication: Mineral supplementation
     Route: 065
  5. ATORVASTATIN [Concomitant]
     Active Substance: ATORVASTATIN
     Indication: Blood cholesterol
     Route: 065
  6. PANTOPRAZOLE [Concomitant]
     Active Substance: PANTOPRAZOLE
     Indication: Gastrooesophageal reflux disease
     Route: 065
  7. ALBUTEROL [Concomitant]
     Active Substance: ALBUTEROL
     Indication: Chronic obstructive pulmonary disease
     Route: 065
  8. VITAMIN B12 [Concomitant]
     Active Substance: CYANOCOBALAMIN
     Indication: Vitamin supplementation
  9. TRAZODONE [Concomitant]
     Active Substance: TRAZODONE HYDROCHLORIDE
     Indication: Sleep disorder
     Route: 065
  10. HYDROCODONE [Concomitant]
     Active Substance: HYDROCODONE
     Indication: Back pain
     Dosage: TIME INTERVAL: AS NECESSARY
     Route: 065
  11. VITAMIN D3 [Concomitant]
     Active Substance: CHOLECALCIFEROL
     Indication: Vitamin supplementation
     Route: 065
  12. NIACIN [Concomitant]
     Active Substance: NIACIN
     Indication: Blood cholesterol
     Route: 065
  13. LINZESS [Concomitant]
     Active Substance: LINACLOTIDE
     Indication: Constipation
     Route: 065
  14. DIVALPROEX SODIUM [Concomitant]
     Active Substance: DIVALPROEX SODIUM
     Indication: Antidepressant therapy
  15. GEMTESA [Concomitant]
     Active Substance: VIBEGRON
     Indication: Chronic obstructive pulmonary disease
     Route: 065
  16. VENLAFAXINE [Concomitant]
     Active Substance: VENLAFAXINE HYDROCHLORIDE
     Indication: Antidepressant therapy
     Route: 065
  17. SPIRIVA RESPIMAT [Concomitant]
     Active Substance: TIOTROPIUM BROMIDE
     Indication: Chronic obstructive pulmonary disease
     Route: 065
  18. ELIQUIS [Concomitant]
     Active Substance: APIXABAN
     Indication: Atrial fibrillation
     Route: 065
  19. GABAPENTIN [Concomitant]
     Active Substance: GABAPENTIN
     Indication: Headache
     Dosage: TIME INTERVAL: AS NECESSARY
  20. ROPINIROLE [Concomitant]
     Active Substance: ROPINIROLE
     Indication: Restless legs syndrome

REACTIONS (5)
  - Coronary artery occlusion [Unknown]
  - Dysphagia [Not Recovered/Not Resolved]
  - Abdominal discomfort [Not Recovered/Not Resolved]
  - Choking [Not Recovered/Not Resolved]
  - Vascular graft [Recovered/Resolved]

NARRATIVE: CASE EVENT DATE: 20220601
